FAERS Safety Report 9596384 (Version 1)
Quarter: 2013Q4

REPORT INFORMATION
  Report Type: Spontaneous
  Country: JP (occurrence: JP)
  Receive Date: 20131004
  Receipt Date: 20131004
  Transmission Date: 20140711
  Serious: Yes (Hospitalization)
  Sender: FDA-Public Use
  Company Number: JP-BAUSCH-BL-2013-005285

PATIENT
  Age: 75 Year
  Sex: Male

DRUGS (5)
  1. BRONUCK OPHTHALMIC SOLUTION 0.1% [Suspect]
     Indication: PRODUCT USED FOR UNKNOWN INDICATION
     Route: 047
  2. GATIFLO OPHTHALMIC SOLUTION 0.3% [Suspect]
     Indication: POSTOPERATIVE CARE
     Route: 047
     Dates: start: 2013
  3. SANTESON OPHTHALMIC SOLUTION 0.1% [Concomitant]
     Route: 047
  4. ACTOS [Concomitant]
     Dates: start: 201307
  5. JANUVIA [Concomitant]
     Dates: start: 201307

REACTIONS (3)
  - Pneumonia [Not Recovered/Not Resolved]
  - Decreased appetite [Not Recovered/Not Resolved]
  - Dysgeusia [Not Recovered/Not Resolved]
